FAERS Safety Report 20662573 (Version 1)
Quarter: 2022Q2

REPORT INFORMATION
  Report Type: Spontaneous
  Country: TW (occurrence: TW)
  Receive Date: 20220401
  Receipt Date: 20220401
  Transmission Date: 20220720
  Serious: Yes (Other)
  Sender: FDA-Public Use
  Company Number: TW-BoehringerIngelheim-2022-BI-162537

PATIENT
  Age: 8 Decade
  Sex: Female

DRUGS (1)
  1. LINAGLIPTIN\METFORMIN HYDROCHLORIDE [Suspect]
     Active Substance: LINAGLIPTIN\METFORMIN HYDROCHLORIDE
     Indication: Product used for unknown indication
     Dosage: TRAJEANTA DUO 2.5/850MG
     Route: 065

REACTIONS (4)
  - Ketoacidosis [Recovered/Resolved]
  - Glomerular filtration rate decreased [Recovered/Resolved]
  - Treatment noncompliance [Unknown]
  - Diabetes mellitus inadequate control [Unknown]
